FAERS Safety Report 8173616-7 (Version None)
Quarter: 2012Q1

REPORT INFORMATION
  Report Type: 
  Country: None (occurrence: None)
  Receive Date: 20120223
  Receipt Date: 20120209
  Transmission Date: 20120608
  Serious: Yes (Hospitalization, Other)
  Sender: FDA-Public Use
  Company Number: 1000028224

PATIENT
  Age: 86 Year
  Sex: Male

DRUGS (9)
  1. ESCITALOPRAM [Suspect]
     Indication: DEPRESSION
     Dosage: 5 MG (5 MG, 1 IN 1 D),ORAL
     Route: 048
  2. DIGOXIN [Concomitant]
  3. ACETYLSALICYLIC ACID SRT [Concomitant]
  4. PANTOPRAZOLE (PANTOPRAZOLE) (PANTOPRAZOLE) [Concomitant]
  5. DISTRANEURAN (CLOMETHIAZOLE) (CLOMETHIAZOLE) [Concomitant]
  6. LITALIR (HYDROXYCARBAMIDE) (HYDROXYCARBAMIDE) [Concomitant]
  7. CARVEDILOL (CARVEDILO) (CAVEDILOL) [Concomitant]
  8. IRON (III)-HYDROXIDE (IRON (III)-HYDROXIDE) (IRON (III)-HYHYDROXIDE) [Concomitant]
  9. ESCITALOPRAM [Suspect]
     Indication: DEPRESSION
     Dosage: 10 MG, (10 MG, 1 IN 1 D) , ORAL
     Route: 048

REACTIONS (17)
  - ANXIETY [None]
  - RESTLESSNESS [None]
  - LEFT VENTRICULAR FAILURE [None]
  - HAEMOGLOBIN DECREASED [None]
  - HALLUCINATION, VISUAL [None]
  - HALLUCINATION, GUSTATORY [None]
  - ACUTE MYOCARDIAL INFARCTION [None]
  - GASTROOESOPHAGEAL REFLUX DISEASE [None]
  - FATIGUE [None]
  - AGGRESSION [None]
  - DELIRIUM [None]
  - ATRIAL FIBRILLATION [None]
  - FEAR [None]
  - SUICIDE ATTEMPT [None]
  - LYMPHOCYTE COUNT DECREASED [None]
  - INSOMNIA [None]
  - SLEEP PHASE RHYTHM DISTURBANCE [None]
